FAERS Safety Report 19095957 (Version 1)
Quarter: 2021Q2

REPORT INFORMATION
  Report Type: Spontaneous
  Country: US (occurrence: US)
  Receive Date: 20210406
  Receipt Date: 20210406
  Transmission Date: 20210717
  Serious: No
  Sender: FDA-Public Use
  Company Number: US-TEVA-2021-US-1897194

PATIENT
  Sex: Female

DRUGS (1)
  1. LORAZEPAM ACTAVIS [Suspect]
     Active Substance: LORAZEPAM
     Indication: PRODUCT USED FOR UNKNOWN INDICATION
     Dosage: TAKE AS NEEDED
     Route: 065

REACTIONS (2)
  - Nausea [Unknown]
  - Pruritus [Not Recovered/Not Resolved]
